FAERS Safety Report 6108287-4 (Version None)
Quarter: 2009Q1

REPORT INFORMATION
  Report Type: 
  Country: None (occurrence: None)
  Receive Date: 20090309
  Receipt Date: 20090226
  Transmission Date: 20090719
  Serious: Yes (Other)
  Sender: FDA-Public Use
  Company Number: US-TYCO HEALTHCARE/MALLINCKRODT-T200900575

PATIENT
  Age: 52 Year
  Sex: Female
  Weight: 91.156 kg

DRUGS (3)
  1. OPTIMARK [Suspect]
     Indication: NUCLEAR MAGNETIC RESONANCE IMAGING
     Dosage: 20 ML (CC), SINGLE
     Route: 042
     Dates: start: 20090224, end: 20090224
  2. OPTIMARK [Suspect]
  3. ANTIHYPERTENSIVES [Concomitant]
     Indication: HYPERTENSION
     Dosage: UNK
     Route: 048

REACTIONS (4)
  - BRONCHOSPASM [None]
  - COUGH [None]
  - THROAT TIGHTNESS [None]
  - WHEEZING [None]
